FAERS Safety Report 19173992 (Version 1)
Quarter: 2021Q2

REPORT INFORMATION
  Report Type: Spontaneous
  Country: SA (occurrence: SA)
  Receive Date: 20210423
  Receipt Date: 20210423
  Transmission Date: 20210717
  Serious: Yes (Death, Hospitalization, Other)
  Sender: FDA-Public Use
  Company Number: SA-JNJFOC-20210444465

PATIENT
  Age: 32 Year
  Sex: Female

DRUGS (1)
  1. TRAMADOL HYDROCHLORIDE. [Suspect]
     Active Substance: TRAMADOL HYDROCHLORIDE
     Indication: SICKLE CELL ANAEMIA WITH CRISIS
     Dosage: 50 MILLIGRAM
     Route: 048

REACTIONS (9)
  - Status epilepticus [Unknown]
  - Oxygen saturation abnormal [Unknown]
  - Confusional state [Unknown]
  - Lethargy [Unknown]
  - Generalised tonic-clonic seizure [Unknown]
  - Coma scale abnormal [Unknown]
  - Moyamoya disease [Fatal]
  - Unresponsive to stimuli [Unknown]
  - Tachypnoea [Unknown]
